FAERS Safety Report 7194310-5 (Version None)
Quarter: 2010Q4

REPORT INFORMATION
  Report Type: 
  Country: None (occurrence: None)
  Receive Date: 20101223
  Receipt Date: 20101203
  Transmission Date: 20110411
  Serious: Yes (Hospitalization, Other)
  Sender: FDA-Public Use
  Company Number: US-BAYER-2010-006782

PATIENT
  Sex: Female
  Weight: 95.238 kg

DRUGS (3)
  1. YAZ [Suspect]
     Indication: CONTRACEPTION
     Dosage: UNK
     Dates: start: 20080101, end: 20090101
  2. HYDROCODONE BITARTRATE [Concomitant]
     Indication: ANALGESIC THERAPY
     Dosage: ONE PILL DAILY
     Dates: start: 20090801
  3. ALEVE-D SINUS + COLD [Concomitant]
     Indication: ANALGESIC THERAPY
     Dosage: WHEN NEEDED

REACTIONS (6)
  - ABDOMINAL PAIN UPPER [None]
  - BILIARY COLIC [None]
  - CHOLECYSTITIS CHRONIC [None]
  - CHOLELITHIASIS [None]
  - DIARRHOEA [None]
  - NAUSEA [None]
